FAERS Safety Report 6178211-7 (Version None)
Quarter: 2009Q2

REPORT INFORMATION
  Report Type: 
  Country: None (occurrence: None)
  Receive Date: 20090504
  Receipt Date: 20090423
  Transmission Date: 20091009
  Serious: Yes (Other)
  Sender: FDA-Public Use
  Company Number: B0571253A

PATIENT

DRUGS (2)
  1. NIQUITIN CQ CLEAR 21MG [Suspect]
     Indication: DRUG USE FOR UNKNOWN INDICATION
     Dosage: 21MG PER DAY
     Route: 062
     Dates: start: 20090415, end: 20090418
  2. SYMBICORT [Concomitant]
     Indication: CHRONIC OBSTRUCTIVE PULMONARY DISEASE
     Route: 055

REACTIONS (6)
  - APHASIA [None]
  - COLD SWEAT [None]
  - DISCOMFORT [None]
  - DISTURBANCE IN ATTENTION [None]
  - MALAISE [None]
  - SKIN BURNING SENSATION [None]
